FAERS Safety Report 5209400-3 (Version None)
Quarter: 2006Q4

REPORT INFORMATION
  Report Type: 
  Country: None (occurrence: None)
  Receive Date: 20061101
  Receipt Date: 20060703
  Transmission Date: 20070319
  Serious: No
  Sender: FDA-Public Use
  Company Number: 2006PV016915

PATIENT
  Age: 45 Year
  Sex: Female
  Weight: 128.8216 kg

DRUGS (4)
  1. SYMLIN [Suspect]
     Indication: DIABETES MELLITUS NON-INSULIN-DEPENDENT
     Dosage: 12 MCG;Q5H;SC
     Route: 058
     Dates: start: 20060401, end: 20060601
  2. LANTUS [Suspect]
     Dosage: 10 UNITS;QD
  3. HUMALOG [Suspect]
     Dosage: 40 UNITS;Q5H
  4. GLUCOTROL XL [Suspect]
     Dates: end: 20060612

REACTIONS (2)
  - DIARRHOEA [None]
  - LIVER FUNCTION TEST ABNORMAL [None]
